FAERS Safety Report 7378076-1 (Version None)
Quarter: 2011Q1

REPORT INFORMATION
  Report Type: 
  Country: None (occurrence: None)
  Receive Date: 20110328
  Receipt Date: 20110321
  Transmission Date: 20110831
  Serious: Yes (Hospitalization)
  Sender: FDA-Public Use
  Company Number: NL-MEDIMMUNE-MEDI-0012937

PATIENT
  Sex: Male
  Weight: 8.5 kg

DRUGS (3)
  1. SYNAGIS [Suspect]
     Route: 030
     Dates: start: 20110311, end: 20110311
  2. SYNAGIS [Suspect]
     Route: 030
     Dates: start: 20101216, end: 20110209
  3. BACTRIM [Concomitant]
     Dates: start: 20110223

REACTIONS (3)
  - HYPERHIDROSIS [None]
  - PYREXIA [None]
  - ATRIAL SEPTAL DEFECT [None]
